FAERS Safety Report 6358563-5 (Version None)
Quarter: 2009Q3

REPORT INFORMATION
  Report Type: 
  Country: None (occurrence: None)
  Receive Date: 20090914
  Receipt Date: 20090828
  Transmission Date: 20100115
  Serious: Yes (Hospitalization)
  Sender: FDA-Public Use
  Company Number: 2009AM000003

PATIENT
  Age: 62 Year
  Sex: Male
  Weight: 90.2658 kg

DRUGS (6)
  1. SYMLIN [Suspect]
     Indication: TYPE 2 DIABETES MELLITUS
     Dosage: 30 MCG; TID; SC, 180 MCG; TID; SC, 60 MCG; TID; SC
     Route: 058
     Dates: start: 20071201, end: 20080101
  2. SYMLIN [Suspect]
     Indication: TYPE 2 DIABETES MELLITUS
     Dosage: 30 MCG; TID; SC, 180 MCG; TID; SC, 60 MCG; TID; SC
     Route: 058
     Dates: start: 20080101, end: 20080501
  3. SYMLIN [Suspect]
     Indication: TYPE 2 DIABETES MELLITUS
     Dosage: 30 MCG; TID; SC, 180 MCG; TID; SC, 60 MCG; TID; SC
     Route: 058
     Dates: start: 20080501
  4. PIOGLITAZONE [Concomitant]
  5. LANTUS [Concomitant]
  6. NOVOLOG [Concomitant]

REACTIONS (5)
  - ANGINA PECTORIS [None]
  - ARTERIOSCLEROSIS CORONARY ARTERY [None]
  - ATELECTASIS [None]
  - CORONARY ARTERY DISEASE [None]
  - PNEUMONIA [None]
